FAERS Safety Report 23410878 (Version 1)
Quarter: 2024Q1

REPORT INFORMATION
  Report Type: Spontaneous
  Country: FR (occurrence: None)
  Receive Date: 20240117
  Receipt Date: 20240117
  Transmission Date: 20240410
  Serious: Yes (Hospitalization)
  Sender: FDA-Public Use
  Company Number: 2024A012630

PATIENT
  Age: 68 Year
  Sex: Male

DRUGS (8)
  1. OMEPRAZOLE [Suspect]
     Active Substance: OMEPRAZOLE
     Dosage: 1D IF NECESSARY
     Route: 048
  2. ATENOLOL [Suspect]
     Active Substance: ATENOLOL
  3. PREDNISOLONE [Suspect]
     Active Substance: PREDNISOLONE
     Indication: Oropharyngeal pain
     Route: 048
     Dates: start: 20231204, end: 20231209
  4. BROMAZEPAM [Suspect]
     Active Substance: BROMAZEPAM
     Dosage: (1/4-1/4-3/4)
  5. PRISTINAMYCIN [Suspect]
     Active Substance: PRISTINAMYCIN
     Indication: Oropharyngeal pain
     Route: 048
     Dates: start: 20231204, end: 20231209
  6. VALACYCLOVIR HYDROCHLORIDE [Suspect]
     Active Substance: VALACYCLOVIR HYDROCHLORIDE
     Indication: Oral herpes
     Dosage: 500MG 1CP IN THE MORNING IF NECESSARY
  7. ELIQUIS [Suspect]
     Active Substance: APIXABAN
     Dosage: 1-0-1
  8. EBASTINE [Suspect]
     Active Substance: EBASTINE
     Indication: Nasal polyps
     Dosage: 5MG 2CP/D

REACTIONS (2)
  - Peritonsillar abscess [Recovering/Resolving]
  - Off label use [Recovered/Resolved]

NARRATIVE: CASE EVENT DATE: 20231201
